FAERS Safety Report 9330722 (Version 1)
Quarter: 2013Q2

REPORT INFORMATION
  Report Type: Spontaneous
  Country: FR (occurrence: FR)
  Receive Date: 20130605
  Receipt Date: 20130605
  Transmission Date: 20140414
  Serious: Yes (Hospitalization)
  Sender: FDA-Public Use
  Company Number: FR-BAYER-2013-067880

PATIENT
  Age: 64 Year
  Sex: Male

DRUGS (9)
  1. CIFLOX [Suspect]
     Indication: OSTEITIS
     Dosage: UNK
     Route: 048
     Dates: start: 20130125, end: 20130318
  2. AMLODIPINE [Concomitant]
  3. GLICLAZIDE [Concomitant]
  4. APROVEL [Concomitant]
  5. HYPERIUM [Concomitant]
  6. TOPALGIC [TRAMADOL HYDROCHLORIDE] [Concomitant]
  7. METFORMINE [Concomitant]
  8. LYRICA [Concomitant]
  9. TARDYFERON [Concomitant]

REACTIONS (2)
  - Encephalopathy [Recovered/Resolved]
  - Renal failure acute [Recovered/Resolved]
